FAERS Safety Report 4951517-2 (Version None)
Quarter: 2006Q1

REPORT INFORMATION
  Report Type: 
  Country: None (occurrence: None)
  Receive Date: 20060317
  Receipt Date: 20060310
  Transmission Date: 20060701
  Serious: Yes (Death, Other)
  Sender: FDA-Public Use
  Company Number: 2006034548

PATIENT
  Age: 72 Year
  Sex: Male
  Weight: 122.4712 kg

DRUGS (2)
  1. BEXTRA [Suspect]
     Indication: ARTHRITIS
     Dosage: (10 MG, UNKNOWN)
     Dates: start: 20050318
  2. ANTIHYPERTENSIVES (ANTIHYPERTENSIVES) [Concomitant]

REACTIONS (1)
  - MYOCARDIAL INFARCTION [None]
